FAERS Safety Report 4619597-1 (Version None)
Quarter: 2005Q1

REPORT INFORMATION
  Report Type: 
  Country: None (occurrence: None)
  Receive Date: 20050317
  Receipt Date: 20050317
  Transmission Date: 20050727
  Serious: Yes (Death, Life-Threatening)
  Sender: FDA-Public Use
  Company Number: None

PATIENT
  Age: 58 Year
  Sex: Male

DRUGS (17)
  1. RISPERDAL [Suspect]
     Indication: SCHIZOPHRENIA
     Dosage: 1 MG PO Q AM AND HS (X5)
     Route: 048
     Dates: start: 20050117
  2. HALOPERIDOL [Suspect]
     Indication: AGITATION
     Dosage: 2 MG PO Q6 H RN (X1)
     Route: 048
     Dates: start: 20050120
  3. CARBIDOPA + LEVODOPA [Suspect]
     Dosage: 25/250 PO, 8 TABS DAILY
     Route: 048
  4. ATIVAN [Concomitant]
  5. CAPTOPRIL [Concomitant]
  6. K-DUR 10 [Concomitant]
  7. ZOCOR [Concomitant]
  8. WELLBUTRIN SR [Concomitant]
  9. DIGOXIN [Concomitant]
  10. COUMADIN [Concomitant]
  11. HUMULIN 70/30 [Concomitant]
  12. METOPROLOL TARTRATE [Concomitant]
  13. PLAVIX [Concomitant]
  14. LOVENOX [Concomitant]
  15. DEMADEX [Concomitant]
  16. DILTIAZEM CD [Concomitant]
  17. LEXAPRO [Concomitant]

REACTIONS (10)
  - ASTHENIA [None]
  - ATRIAL FIBRILLATION [None]
  - CARDIO-RESPIRATORY ARREST [None]
  - CEREBRAL ATROPHY [None]
  - CEREBROVASCULAR ACCIDENT [None]
  - CONDITION AGGRAVATED [None]
  - FACIAL PALSY [None]
  - GASTROINTESTINAL HAEMORRHAGE [None]
  - LETHARGY [None]
  - NEUROLEPTIC MALIGNANT SYNDROME [None]
